FAERS Safety Report 5119179-1 (Version None)
Quarter: 2006Q3

REPORT INFORMATION
  Report Type: 
  Country: None (occurrence: None)
  Receive Date: 20060929
  Receipt Date: 20060929
  Transmission Date: 20061208
  Serious: Yes (Other)
  Sender: FDA-Public Use
  Company Number: None

PATIENT
  Age: 70 Year
  Sex: Male
  Weight: 82.5547 kg

DRUGS (1)
  1. SULFASALAZINE [Suspect]
     Indication: CROHN'S DISEASE
     Dosage: 2 X 500 MG    TID - QID   PO
     Route: 048
     Dates: start: 20060903, end: 20060925

REACTIONS (3)
  - CROHN'S DISEASE [None]
  - DRUG INEFFECTIVE [None]
  - THERAPEUTIC RESPONSE UNEXPECTED WITH DRUG SUBSTITUTION [None]
